FAERS Safety Report 24899559 (Version 1)
Quarter: 2025Q1

REPORT INFORMATION
  Report Type: Spontaneous
  Country: US (occurrence: None)
  Receive Date: 20250129
  Receipt Date: 20250129
  Transmission Date: 20250408
  Serious: Yes (Death)
  Sender: FDA-CTU
  Company Number: None

PATIENT
  Sex: Male

DRUGS (2)
  1. MYCOPHENOLIC ACID [Suspect]
     Active Substance: MYCOPHENOLIC ACID
     Indication: Renal transplant
     Dosage: FREQUENCY : DAILY;?
     Route: 048
     Dates: start: 20201021
  2. ENVARSUS XR [Concomitant]
     Active Substance: TACROLIMUS

REACTIONS (1)
  - Death [None]
